FAERS Safety Report 5203715-0 (Version None)
Quarter: 2007Q1

REPORT INFORMATION
  Report Type: 
  Country: None (occurrence: None)
  Receive Date: 20070110
  Receipt Date: 20070105
  Transmission Date: 20070707
  Serious: Yes (Hospitalization, Other)
  Sender: FDA-Public Use
  Company Number: US-ELI_LILLY_AND_COMPANY-US200603004837

PATIENT
  Age: 39 Year
  Sex: Male
  Weight: 79.365 kg

DRUGS (1)
  1. ZYPREXA [Suspect]
     Dates: start: 19900101

REACTIONS (7)
  - DIABETES MELLITUS [None]
  - HEPATITIS VIRAL [None]
  - HYPOGLYCAEMIA [None]
  - METABOLIC DISORDER [None]
  - PANCREATITIS [None]
  - POLYDIPSIA [None]
  - VISION BLURRED [None]
